FAERS Safety Report 4852353-8 (Version None)
Quarter: 2005Q4

REPORT INFORMATION
  Report Type: 
  Country: None (occurrence: None)
  Receive Date: 20051209
  Receipt Date: 20051201
  Transmission Date: 20060501
  Serious: Yes (Hospitalization, Disabling)
  Sender: FDA-Public Use
  Company Number: HQWYE816802DEC05

PATIENT
  Age: 37 Year
  Sex: Female

DRUGS (4)
  1. EFFEXOR XR [Suspect]
     Indication: DEPRESSION
     Dosage: SEE IMAGE
     Route: 048
     Dates: start: 19990101, end: 20050101
  2. EFFEXOR XR [Suspect]
     Indication: DEPRESSION
     Dosage: SEE IMAGE
     Route: 048
     Dates: start: 20050101, end: 20050101
  3. EFFEXOR XR [Suspect]
     Indication: DEPRESSION
     Dosage: SEE IMAGE
     Route: 048
     Dates: start: 29950101, end: 20051115
  4. AMBIEN [Concomitant]

REACTIONS (11)
  - ARTHRALGIA [None]
  - DEPRESSION [None]
  - DIPLOPIA [None]
  - DISTURBANCE IN ATTENTION [None]
  - DRUG WITHDRAWAL SYNDROME [None]
  - PANIC ATTACK [None]
  - PARAESTHESIA [None]
  - REFUSAL OF TREATMENT BY PATIENT [None]
  - SUICIDAL IDEATION [None]
  - TINNITUS [None]
  - VISION BLURRED [None]
